FAERS Safety Report 5494039-5 (Version None)
Quarter: 2007Q4

REPORT INFORMATION
  Report Type: 
  Country: None (occurrence: None)
  Receive Date: 20071023
  Receipt Date: 20071011
  Transmission Date: 20080405
  Serious: Yes (Life-Threatening, Hospitalization)
  Sender: FDA-Public Use
  Company Number: FR-PFIZER INC-2007085843

PATIENT
  Sex: Male

DRUGS (8)
  1. LYRICA [Suspect]
     Indication: NEURALGIA
  2. GLUCOPHAGE [Concomitant]
  3. AMARYL [Concomitant]
  4. RENITEC [Concomitant]
     Indication: HYPERTENSION
  5. ISOPTIN [Concomitant]
  6. AUGMENTIN '125' [Concomitant]
  7. TAHOR [Concomitant]
  8. PLAVIX [Concomitant]

REACTIONS (3)
  - HYPERKALAEMIA [None]
  - RENAL FAILURE ACUTE [None]
  - SHOCK [None]
